FAERS Safety Report 23891411 (Version 1)
Quarter: 2024Q2

REPORT INFORMATION
  Report Type: Report from Study
  Country: IN (occurrence: IN)
  Receive Date: 20240523
  Receipt Date: 20240523
  Transmission Date: 20240717
  Serious: Yes (Hospitalization, Other)
  Sender: FDA-Public Use
  Company Number: IN-CIPLA LTD.-2024IN04896

PATIENT

DRUGS (5)
  1. METOPROLOL SUCCINATE [Suspect]
     Active Substance: METOPROLOL SUCCINATE
     Indication: Product used for unknown indication
     Dosage: DOSE USED-1, FREQUENCY-1 (UNSPECIFIED UNITS)
     Route: 048
  2. ESOMAC [ESOMEPRAZOLE] [Concomitant]
     Indication: Product used for unknown indication
     Dosage: UNK
     Route: 065
  3. CARVIDON MR [Concomitant]
     Indication: Product used for unknown indication
     Dosage: UNK
     Route: 065
  4. HOPACE [Concomitant]
     Indication: Product used for unknown indication
     Dosage: UNK
     Route: 065
  5. ROSUMAC GOLD [Concomitant]
     Indication: Product used for unknown indication
     Dosage: UNK (STRENGTH: 20 MG)
     Route: 065

REACTIONS (1)
  - Myocardial infarction [Not Recovered/Not Resolved]

NARRATIVE: CASE EVENT DATE: 20240510
